FAERS Safety Report 22174352 (Version 1)
Quarter: 2023Q2

REPORT INFORMATION
  Report Type: Spontaneous
  Country: US (occurrence: US)
  Receive Date: 20230405
  Receipt Date: 20230405
  Transmission Date: 20230722
  Serious: Yes (Hospitalization)
  Sender: FDA-Public Use
  Company Number: US-BIOGEN-2023BI01196659

PATIENT
  Sex: Female
  Weight: 81.266 kg

DRUGS (22)
  1. TECFIDERA [Suspect]
     Active Substance: DIMETHYL FUMARATE
     Indication: Multiple sclerosis
     Dosage: STARTING DOSE
     Route: 050
     Dates: start: 20150311
  2. TECFIDERA [Suspect]
     Active Substance: DIMETHYL FUMARATE
     Dosage: MAINTENANCE DOSE
     Route: 050
     Dates: end: 20230208
  3. FARXIGA [Concomitant]
     Active Substance: DAPAGLIFLOZIN PROPANEDIOL
     Indication: Product used for unknown indication
     Dosage: ONE TABLET ORALLY ONCE A DAY
     Route: 050
  4. IMITREX [Concomitant]
     Active Substance: SUMATRIPTAN SUCCINATE
     Indication: Headache
     Dosage: ONE TABLET AT ONSET OF HEADACHE, MAY REPEAT IN 2/HRS, NO MORE THAN 2/24 HRS, NO MORE THAN 4/WEEK ...
     Route: 050
  5. LYRICA [Concomitant]
     Active Substance: PREGABALIN
     Indication: Product used for unknown indication
     Route: 050
  6. PREDNISONE [Concomitant]
     Active Substance: PREDNISONE
     Indication: Product used for unknown indication
     Dosage: ONE TABLET ORALLY ONCE A DAY FOR 2 WEEKS.
     Route: 050
  7. JANUVIA [Concomitant]
     Active Substance: SITAGLIPTIN PHOSPHATE
     Indication: Product used for unknown indication
     Dosage: ONE TABLET ORALLY ONCE A DAY.
     Route: 050
  8. VENLAFAXINE HCL [Concomitant]
     Active Substance: VENLAFAXINE HYDROCHLORIDE
     Indication: Product used for unknown indication
     Dosage: ONE TABLET WITH FOOD ORALLY TWICE A DAY.
     Route: 050
  9. ATORVASTATIN CALCIUM [Concomitant]
     Active Substance: ATORVASTATIN CALCIUM
     Indication: Product used for unknown indication
     Route: 050
  10. ATORVASTATIN CALCIUM [Concomitant]
     Active Substance: ATORVASTATIN CALCIUM
     Dosage: ONE TABLET ORALLY ONCE A DAY FOR 2 WEEKS.
     Route: 050
  11. FLUTICASONE FUROATE [Concomitant]
     Active Substance: FLUTICASONE FUROATE
     Indication: Product used for unknown indication
     Dosage: ACT AEROSOL POWDER BREATH ACTIVATED 2 PUFFS INHALATION TWICE A DAY.
     Route: 050
  12. FLUTICASONE FUROATE [Concomitant]
     Active Substance: FLUTICASONE FUROATE
     Dosage: ONE TABLET ORALLY ONCE A DAY FOR 2 WEEKS.
     Route: 050
  13. AIMOVIG [Concomitant]
     Active Substance: ERENUMAB-AOOE
     Indication: Product used for unknown indication
     Dosage: 70 MG/ML SOLUTION AUTO-INJECTOR AS DIRECTED SUBCUTANEOUS ONCE A MONTH.
     Route: 050
  14. AIMOVIG [Concomitant]
     Active Substance: ERENUMAB-AOOE
     Dosage: ONE TABLET ORALLY ONCE A DAY FOR 2 WEEKS.
     Route: 050
  15. BUTALBITAL, ACETAMINOPHEN, AND CAFFEINE [Concomitant]
     Active Substance: ACETAMINOPHEN\BUTALBITAL\CAFFEINE
     Indication: Product used for unknown indication
     Dosage: 50-325-40 MG CAPSULE AS NEEDED ORALLY ONCE A DAY.
     Route: 050
  16. BUTALBITAL, ACETAMINOPHEN, AND CAFFEINE [Concomitant]
     Active Substance: ACETAMINOPHEN\BUTALBITAL\CAFFEINE
     Dosage: ONE TABLET ORALLY ONCE A DAY FOR 2 WEEKS.
     Route: 050
  17. CELEBREX [Concomitant]
     Active Substance: CELECOXIB
     Indication: Product used for unknown indication
     Dosage: 1 CAPSULE WITH FOOD AS NEEDED ORALLY ONCE A DAY.
     Route: 050
  18. CELEBREX [Concomitant]
     Active Substance: CELECOXIB
     Dosage: ONE TABLET ORALLY ONCE A DAY FOR 2 WEEKS.
     Route: 050
  19. LISINOPRIL [Concomitant]
     Active Substance: LISINOPRIL
     Indication: Product used for unknown indication
     Route: 050
  20. LISINOPRIL [Concomitant]
     Active Substance: LISINOPRIL
     Dosage: ONE TABLET ORALLY ONCE A DAY FOR 2 WEEKS.
     Route: 050
  21. CYCLOBENZAPRINE HYDROCHLORIDE [Concomitant]
     Active Substance: CYCLOBENZAPRINE HYDROCHLORIDE
     Indication: Product used for unknown indication
     Dosage: 2 TABLETS ORALLY AT NIGHT
     Route: 050
  22. CYCLOBENZAPRINE HYDROCHLORIDE [Concomitant]
     Active Substance: CYCLOBENZAPRINE HYDROCHLORIDE
     Dosage: ONE TABLET ORALLY ONCE A DAY FOR 2 WEEKS.
     Route: 050

REACTIONS (2)
  - Asthenia [Unknown]
  - Dysarthria [Unknown]
